FAERS Safety Report 20658507 (Version 1)
Quarter: 2022Q1

REPORT INFORMATION
  Report Type: Spontaneous
  Country: US (occurrence: US)
  Receive Date: 20220331
  Receipt Date: 20220331
  Transmission Date: 20220423
  Serious: No
  Sender: FDA-Public Use
  Company Number: US-Osmotica_Pharmaceutical_US_LLC-POI0573202100254

PATIENT
  Age: 30 Year
  Sex: Female
  Weight: 72.57 kg

DRUGS (2)
  1. OXYBUTYNIN CHLORIDE [Suspect]
     Active Substance: OXYBUTYNIN CHLORIDE
     Indication: Hypertonic bladder
     Route: 048
  2. GABAPENTIN [Suspect]
     Active Substance: GABAPENTIN
     Indication: Neuralgia

REACTIONS (2)
  - Neuralgia [Unknown]
  - Drug interaction [Unknown]

NARRATIVE: CASE EVENT DATE: 20210101
